FAERS Safety Report 9416144 (Version 1)
Quarter: 2013Q3

REPORT INFORMATION
  Report Type: Spontaneous
  Country: US (occurrence: None)
  Receive Date: 20130723
  Receipt Date: 20130723
  Transmission Date: 20140515
  Serious: No
  Sender: FDA-Public Use
  Company Number: None

PATIENT
  Age: 69 Year
  Sex: Female
  Weight: 68.04 kg

DRUGS (3)
  1. PROLIA PROLIA PLUS [Suspect]
     Indication: OSTEOPOROSIS
     Dosage: 60 MG/ML 1 SHOT 1 INJECTION EVERY 6 MO. INJECTION
     Route: 051
     Dates: start: 20120306, end: 20130312
  2. PROTONIX [Concomitant]
  3. SUCRALFATE [Concomitant]

REACTIONS (4)
  - Aphonia [None]
  - Drug ineffective [None]
  - Gastrooesophageal reflux disease [None]
  - Barrett^s oesophagus [None]
